FAERS Safety Report 20092691 (Version 1)
Quarter: 2021Q4

REPORT INFORMATION
  Report Type: Spontaneous
  Country: US (occurrence: US)
  Receive Date: 20211120
  Receipt Date: 20211120
  Transmission Date: 20220303
  Serious: Yes (Hospitalization)
  Sender: FDA-Public Use
  Company Number: US-NOVARTISPH-NVSC2021US262036

PATIENT
  Age: 64 Year
  Sex: Male

DRUGS (2)
  1. RANITIDINE [Suspect]
     Active Substance: RANITIDINE
     Indication: Abdominal discomfort
     Dosage: 150 MG, QD
     Route: 048
     Dates: start: 199901, end: 201712
  2. RANITIDINE [Suspect]
     Active Substance: RANITIDINE
     Indication: Abdominal discomfort
     Dosage: 150 MG, QD
     Route: 048
     Dates: start: 199901, end: 201712

REACTIONS (4)
  - Colorectal cancer stage IV [Recovering/Resolving]
  - Bladder cancer stage IV [Unknown]
  - Renal cancer stage IV [Unknown]
  - Incorrect dose administered [Unknown]

NARRATIVE: CASE EVENT DATE: 20090526
